FAERS Safety Report 15085328 (Version 1)
Quarter: 2018Q2

REPORT INFORMATION
  Report Type: Report from Study
  Country: LB (occurrence: LB)
  Receive Date: 20180628
  Receipt Date: 20180628
  Transmission Date: 20180711
  Serious: Yes (Hospitalization)
  Sender: FDA-Public Use
  Company Number: PHHY2018LB029760

PATIENT
  Age: 68 Year
  Sex: Female

DRUGS (1)
  1. AFINITOR [Suspect]
     Active Substance: EVEROLIMUS
     Indication: OVARIAN GRANULOSA CELL TUMOUR
     Dosage: 5 MG, QD
     Route: 048

REACTIONS (4)
  - Hernia [Recovered/Resolved]
  - Infection [Recovering/Resolving]
  - Product use in unapproved indication [Unknown]
  - Post procedural complication [Unknown]

NARRATIVE: CASE EVENT DATE: 201805
